FAERS Safety Report 10985791 (Version 2)
Quarter: 2015Q2

REPORT INFORMATION
  Report Type: Spontaneous
  Country: US (occurrence: US)
  Receive Date: 20150404
  Receipt Date: 20150404
  Transmission Date: 20150821
  Serious: No
  Sender: FDA-Public Use
  Company Number: US-SA-2014SA079364

PATIENT
  Age: 65 Year
  Sex: Female

DRUGS (1)
  1. ALLEGRA-D [Suspect]
     Active Substance: FEXOFENADINE\PSEUDOEPHEDRINE
     Indication: PRODUCT USED FOR UNKNOWN INDICATION
     Route: 048

REACTIONS (11)
  - Dyspnoea [Unknown]
  - Insomnia [Unknown]
  - Oropharyngeal pain [Unknown]
  - Somnolence [Recovering/Resolving]
  - Swollen tongue [Unknown]
  - Malaise [Unknown]
  - Pruritus [Recovering/Resolving]
  - Fatigue [Unknown]
  - Sinusitis [Unknown]
  - Urticaria [Unknown]
  - Restlessness [Unknown]
